FAERS Safety Report 10276805 (Version 1)
Quarter: 2014Q3

REPORT INFORMATION
  Report Type: Spontaneous
  Country: FR (occurrence: FR)
  Receive Date: 20140703
  Receipt Date: 20140703
  Transmission Date: 20150326
  Serious: Yes (Death, Life-Threatening, Hospitalization)
  Sender: FDA-Public Use
  Company Number: FR-ASTRAZENECA-2014SE47886

PATIENT
  Age: 24940 Day
  Sex: Male

DRUGS (5)
  1. INEXIUM [Suspect]
     Active Substance: ESOMEPRAZOLE
     Route: 048
     Dates: end: 20140528
  2. TRAMADOL [Suspect]
     Active Substance: TRAMADOL
     Dosage: 300 MG SR SYSTEMATICALLY AND 100 MG SR IN INTERDOSE
     Route: 048
     Dates: start: 201405, end: 20140528
  3. KETODERM [Suspect]
     Active Substance: KETOCONAZOLE
     Route: 003
     Dates: start: 20140522, end: 20140528
  4. SPECIAFOLDINE (NON AZ PRODUCT) [Suspect]
     Active Substance: FOLIC ACID
     Route: 048
     Dates: end: 20140528
  5. AUGMENTIN [Suspect]
     Active Substance: AMOXICILLIN\CLAVULANATE POTASSIUM
     Route: 048
     Dates: start: 20140528, end: 20140607

REACTIONS (18)
  - Septic shock [Unknown]
  - Acute respiratory failure [Unknown]
  - Coagulation factor V level decreased [Unknown]
  - Encephalopathy [Unknown]
  - Bacterial prostatitis [Unknown]
  - Pneumonia aspiration [Unknown]
  - Therapy cessation [Unknown]
  - Disorientation [None]
  - Hepatitis fulminant [Fatal]
  - Prothrombin time prolonged [Unknown]
  - Fall [Unknown]
  - Renal impairment [Unknown]
  - Depressed level of consciousness [Unknown]
  - Hepatic encephalopathy [Unknown]
  - Transaminases increased [Fatal]
  - Plasma cell myeloma [Unknown]
  - Pseudomonal sepsis [Unknown]
  - Renal failure [None]

NARRATIVE: CASE EVENT DATE: 201405
